FAERS Safety Report 5056701-8 (Version None)
Quarter: 2006Q2

REPORT INFORMATION
  Report Type: 
  Country: None (occurrence: None)
  Receive Date: 20060616
  Receipt Date: 20060313
  Transmission Date: 20061013
  Serious: No
  Sender: FDA-Public Use
  Company Number: 2006US000548

PATIENT
  Age: 68 Year
  Sex: Female

DRUGS (7)
  1. VESICARE [Suspect]
     Indication: HYPERTONIC BLADDER
     Dosage: 5 MG, UID/QD, ORAL
     Route: 048
     Dates: start: 20060312
  2. PREVACID [Concomitant]
  3. NAPROSYN [Concomitant]
  4. ZYRTEC [Concomitant]
  5. NASONEX [Concomitant]
  6. ACYCLOVIR [Concomitant]
  7. ACTONEL [Concomitant]

REACTIONS (1)
  - URINARY RETENTION [None]
